FAERS Safety Report 6056369-8 (Version None)
Quarter: 2009Q1

REPORT INFORMATION
  Report Type: 
  Country: None (occurrence: None)
  Receive Date: 20090129
  Receipt Date: 20090119
  Transmission Date: 20090719
  Serious: Yes (Death, Other)
  Sender: FDA-Public Use
  Company Number: TR-WATSON-2009-00321

PATIENT

DRUGS (1)
  1. SULFASALAZINE [Suspect]
     Indication: DRUG USE FOR UNKNOWN INDICATION
     Dosage: UNK

REACTIONS (5)
  - CENTRAL NERVOUS SYSTEM LESION [None]
  - COMA [None]
  - CONVULSION [None]
  - MUSCLE TWITCHING [None]
  - NEUROTOXICITY [None]
